FAERS Safety Report 5551617-2 (Version None)
Quarter: 2007Q4

REPORT INFORMATION
  Report Type: 
  Country: None (occurrence: None)
  Receive Date: 20071128
  Receipt Date: 20061017
  Transmission Date: 20080405
  Serious: Yes (Other)
  Sender: FDA-Public Use
  Company Number: PHEH2006US10315

PATIENT
  Age: 65 Year
  Sex: Female

DRUGS (6)
  1. LAMISIL [Suspect]
     Dosage: 250 MG, QD, ORAL
     Route: 048
     Dates: start: 20050601, end: 20050801
  2. IBUPROFEN [Concomitant]
  3. SYNTHROID [Concomitant]
  4. EVISTA [Concomitant]
  5. FOSAMAX [Concomitant]
  6. PROTONIX [Concomitant]

REACTIONS (4)
  - EXFOLIATIVE RASH [None]
  - HYPERSENSITIVITY [None]
  - RASH GENERALISED [None]
  - RASH PAPULAR [None]
